FAERS Safety Report 7246054-9 (Version None)
Quarter: 2011Q1

REPORT INFORMATION
  Report Type: 
  Country: None (occurrence: None)
  Receive Date: 20110126
  Receipt Date: 20110120
  Transmission Date: 20110831
  Serious: Yes (Other)
  Sender: FDA-Public Use
  Company Number: CHPA2011US01287

PATIENT
  Sex: Female

DRUGS (1)
  1. KERI ORIGINAL [Suspect]
     Dosage: UNK, BID
     Route: 061
     Dates: start: 20110117, end: 20110117

REACTIONS (4)
  - BLISTER [None]
  - NAUSEA [None]
  - RASH [None]
  - PRURITUS [None]
